FAERS Safety Report 18013912 (Version 4)
Quarter: 2020Q3

REPORT INFORMATION
  Report Type: Spontaneous
  Country: US (occurrence: US)
  Receive Date: 20200713
  Receipt Date: 20200924
  Transmission Date: 20201103
  Serious: Yes (Death, Other)
  Sender: FDA-Public Use
  Company Number: US-STEMLINE THERAPEUTICS, INC.-2020ST000038

PATIENT
  Age: 72 Year
  Sex: Female

DRUGS (3)
  1. ELZONRIS [Suspect]
     Active Substance: TAGRAXOFUSP-ERZS
     Route: 042
     Dates: start: 20200709, end: 20200714
  2. ELZONRIS [Suspect]
     Active Substance: TAGRAXOFUSP-ERZS
     Indication: BLASTIC PLASMACYTOID DENDRITIC CELL NEOPLASIA
     Route: 042
     Dates: start: 20200618, end: 20200618
  3. ALLOPURINOL. [Concomitant]
     Active Substance: ALLOPURINOL
     Indication: RENAL DISORDER

REACTIONS (10)
  - Disease progression [Unknown]
  - Renal disorder [Unknown]
  - Death [Fatal]
  - Sepsis [Unknown]
  - Tumour lysis syndrome [Recovering/Resolving]
  - Transaminases increased [Recovered/Resolved]
  - Somnolence [Unknown]
  - Decreased appetite [Unknown]
  - Fatigue [Unknown]
  - Renal failure [Unknown]

NARRATIVE: CASE EVENT DATE: 2020
